FAERS Safety Report 4957549-2 (Version None)
Quarter: 2006Q1

REPORT INFORMATION
  Report Type: 
  Country: None (occurrence: None)
  Receive Date: 20060330
  Receipt Date: 20060215
  Transmission Date: 20060701
  Serious: No
  Sender: FDA-Public Use
  Company Number: US-GLAXOSMITHKLINE-A0593871A

PATIENT
  Age: 76 Year
  Sex: Female

DRUGS (4)
  1. FLOVENT [Suspect]
     Indication: ASTHMA
     Dosage: 2PUFF TWICE PER DAY
     Route: 055
     Dates: start: 20051201, end: 20060102
  2. ASTHMAXINE [Concomitant]
  3. THYROID TAB [Concomitant]
  4. FOSAMAX [Concomitant]

REACTIONS (5)
  - DIZZINESS [None]
  - HYPERSENSITIVITY [None]
  - MOUTH ULCERATION [None]
  - SWELLING FACE [None]
  - TOOTHACHE [None]
